FAERS Safety Report 8938487 (Version 1)
Quarter: 2012Q4

REPORT INFORMATION
  Report Type: 
  Country: CN (occurrence: CN)
  Receive Date: 20121130
  Receipt Date: 20121130
  Transmission Date: 20130627
  Serious: Yes (Other)
  Sender: FDA-Public Use
  Company Number: PHHY2012CN107193

PATIENT
  Age: 77 Year
  Sex: Male
  Weight: 55 kg

DRUGS (1)
  1. LESCOL [Suspect]
     Indication: MYOCARDIAL INFARCTION
     Dosage: 40 mg, QD
     Route: 048
     Dates: start: 20081227, end: 20090105

REACTIONS (2)
  - Concomitant disease progression [Unknown]
  - Blood creatine phosphokinase increased [Recovering/Resolving]
